FAERS Safety Report 12303017 (Version 3)
Quarter: 2016Q3

REPORT INFORMATION
  Report Type: Spontaneous
  Country: GB (occurrence: GB)
  Receive Date: 20160426
  Receipt Date: 20160707
  Transmission Date: 20161109
  Serious: Yes (Other)
  Sender: FDA-Public Use
  Company Number: GB-BEH-2016061563

PATIENT
  Sex: Female
  Weight: 50.8 kg

DRUGS (5)
  1. RHOPHYLAC [Suspect]
     Active Substance: HUMAN RHO(D) IMMUNE GLOBULIN
     Indication: PROPHYLAXIS AGAINST RH ISOIMMUNISATION
     Dosage: 1500 UNK, UNK
     Route: 030
     Dates: start: 20151230, end: 20151230
  2. RHOPHYLAC [Suspect]
     Active Substance: HUMAN RHO(D) IMMUNE GLOBULIN
     Indication: FOETAL DEATH
     Dosage: 1500 IU, TOT
     Route: 030
     Dates: start: 20160320, end: 20160320
  3. RHOPHYLAC [Suspect]
     Active Substance: HUMAN RHO(D) IMMUNE GLOBULIN
     Indication: FOETAL-MATERNAL HAEMORRHAGE
     Dosage: 15000 IU, TOT
     Route: 042
     Dates: start: 20160322, end: 20160322
  4. RHOPHYLAC [Suspect]
     Active Substance: HUMAN RHO(D) IMMUNE GLOBULIN
     Indication: KLEIHAUER-BETKE TEST POSITIVE
     Dosage: 1500 IU, TOT
     Route: 030
     Dates: start: 20160323, end: 20160323
  5. RHOPHYLAC [Suspect]
     Active Substance: HUMAN RHO(D) IMMUNE GLOBULIN
     Dosage: 1500 IU, TOT
     Route: 030
     Dates: start: 20160325, end: 20160325

REACTIONS (8)
  - Chills [Recovered/Resolved]
  - Peripheral circulatory failure [Recovered/Resolved]
  - Pyrexia [Recovered/Resolved]
  - Headache [Recovered/Resolved]
  - Tachycardia [Recovered/Resolved]
  - Malaise [Recovered/Resolved]
  - Tremor [Recovered/Resolved]
  - Skin discolouration [Recovered/Resolved]

NARRATIVE: CASE EVENT DATE: 20160322
